FAERS Safety Report 5055035-5 (Version None)
Quarter: 2006Q3

REPORT INFORMATION
  Report Type: 
  Country: None (occurrence: None)
  Receive Date: 20060719
  Receipt Date: 20060222
  Transmission Date: 20061208
  Serious: Yes (Hospitalization)
  Sender: FDA-Public Use
  Company Number: FR-MERCK-0602FRA00084

PATIENT
  Age: 85 Year
  Sex: Female
  Weight: 74 kg

DRUGS (8)
  1. ZOCOR [Suspect]
     Indication: HYPERCHOLESTEROLAEMIA
     Route: 048
  2. BUFLOMEDIL HYDROCHLORIDE [Concomitant]
     Route: 048
  3. OXYBUTYNIN CHLORIDE [Concomitant]
     Route: 048
  4. ZOPICLONE [Concomitant]
     Indication: INSOMNIA
     Route: 048
  5. PERINDOPRIL ERBUMINE [Concomitant]
     Indication: CARDIAC FAILURE
     Route: 048
  6. FLUOXETINE HYDROCHLORIDE [Suspect]
     Indication: DEPRESSION
     Route: 048
     Dates: start: 20000101, end: 20051129
  7. FLUOXETINE HYDROCHLORIDE [Suspect]
     Route: 048
     Dates: start: 20051130, end: 20060501
  8. FLUOXETINE HYDROCHLORIDE [Suspect]
     Route: 048
     Dates: start: 20060601

REACTIONS (3)
  - ALVEOLITIS [None]
  - INTERSTITIAL LUNG DISEASE [None]
  - PULMONARY FIBROSIS [None]
